FAERS Safety Report 6805083-7 (Version None)
Quarter: 2010Q2

REPORT INFORMATION
  Report Type: 
  Country: None (occurrence: None)
  Receive Date: 20100628
  Receipt Date: 20070815
  Transmission Date: 20101027
  Serious: Yes (Hospitalization, Other)
  Sender: FDA-Public Use
  Company Number: US-PFIZER INC-2007069141

PATIENT
  Sex: Male

DRUGS (1)
  1. GEODON [Suspect]

REACTIONS (5)
  - HEADACHE [None]
  - MUSCLE TWITCHING [None]
  - PYREXIA [None]
  - SOMNOLENCE [None]
  - VISUAL IMPAIRMENT [None]
